FAERS Safety Report 6464275-X (Version None)
Quarter: 2009Q4

REPORT INFORMATION
  Report Type: 
  Country: None (occurrence: None)
  Receive Date: 20091130
  Receipt Date: 20091130
  Transmission Date: 20100525
  Serious: Yes (Life-Threatening, Hospitalization, Other)
  Sender: FDA-Public Use
  Company Number: None

PATIENT
  Age: 40 Year
  Sex: Female
  Weight: 49.2 kg

DRUGS (18)
  1. EPIRUBICIN HCL [Suspect]
     Dosage: 50 MG/M2, EVERY 3 WEEKS
     Dates: start: 20090717
  2. OXALIPLATIN [Suspect]
     Dosage: 155 MG, EVERY 3 WEEKS
     Dates: start: 20090717
  3. CAPECITABINE [Suspect]
     Dosage: 650 MG. EVERY 3 WEEKS
     Dates: start: 20090717
  4. PANITUMUMAB (PANITUMUMAB) [Suspect]
     Dosage: 462 MG. EVERY 3 WEEKS. INTRAVENOUS
     Route: 042
  5. ACETAMINOPHEN [Concomitant]
  6. PROCHLORPERZAINE EDISYLATE (PROCHLORPERAZINE EDISYLATE) [Concomitant]
  7. CALCIUM (CALCIUM) [Concomitant]
  8. DEXAMETHASONE TAB [Concomitant]
  9. DOCUSATE (DOCUSATE) [Concomitant]
  10. ETHAMUTOL (ETHAMUTOL) [Concomitant]
  11. IBUPROFEN [Concomitant]
  12. ISONIAZID [Concomitant]
  13. MAGNESIUM OXIDE (MAGNESIUM OXIDE) [Concomitant]
  14. OMEPRAZOLE [Concomitant]
  15. OXYCODONE HCL [Concomitant]
  16. PYRAZINAMIDE [Concomitant]
  17. PYRIDOXINE HYDROCHLORIDE (PYRIDOXINE HYDROCHLORIDE) [Concomitant]
  18. ONDANSETRON HYDROCHLORIDE [Concomitant]

REACTIONS (6)
  - BACTERIAL TEST POSITIVE [None]
  - CLOSTRIDIAL INFECTION [None]
  - COLITIS [None]
  - HAEMATOCRIT DECREASED [None]
  - NEUTROPENIA [None]
  - PYREXIA [None]
